FAERS Safety Report 21315473 (Version 1)
Quarter: 2022Q3

REPORT INFORMATION
  Report Type: Spontaneous
  Country: DK (occurrence: DK)
  Receive Date: 20220909
  Receipt Date: 20220909
  Transmission Date: 20221027
  Serious: Yes (Other)
  Sender: FDA-Public Use
  Company Number: None

PATIENT
  Age: 67 Year
  Sex: Male

DRUGS (2)
  1. OPDIVO [Suspect]
     Active Substance: NIVOLUMAB
     Indication: Malignant melanoma
     Dosage: DOSAGE AND STRENGHT: UNKNOWN
     Route: 065
     Dates: start: 20200313, end: 202006
  2. KEYTRUDA [Suspect]
     Active Substance: PEMBROLIZUMAB
     Indication: Malignant melanoma
     Dosage: DOSAGE: UNKNOWN, STRENGTH: 25MG/ML
     Route: 065
     Dates: start: 20200629

REACTIONS (7)
  - Diabetes mellitus [Not Recovered/Not Resolved]
  - Decreased appetite [Unknown]
  - Pollakiuria [Unknown]
  - Oral fungal infection [Unknown]
  - Fatigue [Unknown]
  - Weight decreased [Unknown]
  - Diabetic ketoacidosis [Recovered/Resolved]

NARRATIVE: CASE EVENT DATE: 20200901
